FAERS Safety Report 5220216-4 (Version None)
Quarter: 2007Q1

REPORT INFORMATION
  Report Type: 
  Country: None (occurrence: None)
  Receive Date: 20061208
  Receipt Date: 20060518
  Transmission Date: 20070707
  Serious: Yes (Other)
  Sender: FDA-Public Use
  Company Number: 2006065968

PATIENT
  Age: 68 Year
  Sex: Male
  Weight: 74.8435 kg

DRUGS (3)
  1. VIAGRA [Suspect]
     Indication: ERECTILE DYSFUNCTION
     Dosage: (25 MG)
     Dates: end: 20060101
  2. MIRAPEX [Concomitant]
  3. ALL OTHER THERAPEUTIC PRODUCTS (ALL THERAPEUTIC PRODUCTS) [Concomitant]

REACTIONS (2)
  - ERECTILE DYSFUNCTION [None]
  - ERECTION INCREASED [None]
